FAERS Safety Report 4767722-4 (Version None)
Quarter: 2005Q3

REPORT INFORMATION
  Report Type: 
  Country: None (occurrence: None)
  Receive Date: 20050912
  Receipt Date: 20050908
  Transmission Date: 20060218
  Serious: Yes (Disabling)
  Sender: FDA-Public Use
  Company Number: IND-AE-05-SAN-052

PATIENT
  Age: 38 Year
  Sex: Female

DRUGS (2)
  1. REGURIN (TROSPIUM CHLORIDE) MADAUS [Suspect]
     Dosage: 20 MG BID ORAL
     Route: 048
     Dates: start: 20050704, end: 20050706
  2. ACETAMINOPHEN W/ CODEINE [Concomitant]

REACTIONS (8)
  - HEADACHE [None]
  - HEPATIC ENZYME INCREASED [None]
  - HYPOAESTHESIA [None]
  - JAUNDICE [None]
  - NEUROLOGICAL SYMPTOM [None]
  - PARAESTHESIA [None]
  - SENSORY LOSS [None]
  - SPEECH DISORDER [None]
